FAERS Safety Report 26157241 (Version 1)
Quarter: 2025Q4

REPORT INFORMATION
  Report Type: Report from Study
  Country: US (occurrence: US)
  Receive Date: 20251215
  Receipt Date: 20251215
  Transmission Date: 20260119
  Serious: Yes (Other)
  Sender: TAKEDA
  Company Number: US-TAKEDA-2025TUS112479

PATIENT
  Age: 77 Year
  Sex: Male

DRUGS (1)
  1. VEDOLIZUMAB [Suspect]
     Active Substance: VEDOLIZUMAB
     Indication: Product used for unknown indication
     Dosage: UNK, Q4WEEKS

REACTIONS (20)
  - Atrial fibrillation [Unknown]
  - Colitis ulcerative [Unknown]
  - Type 2 diabetes mellitus [Unknown]
  - Vertebrobasilar artery stenosis [Unknown]
  - Basal cell carcinoma [Unknown]
  - Skin cancer [Unknown]
  - Vertebrobasilar artery dissection [Unknown]
  - Tuberculosis [Unknown]
  - Adenomatous polyposis coli [Unknown]
  - Hypertensive heart disease [Unknown]
  - Mononeuropathy [Unknown]
  - Gout [Unknown]
  - Osteopenia [Unknown]
  - Scoliosis [Unknown]
  - Seborrhoeic keratosis [Unknown]
  - Solar lentigo [Unknown]
  - Hyperlipidaemia [Unknown]
  - Intervertebral disc degeneration [Unknown]
  - Spinal osteoarthritis [Unknown]
  - Melanocytic naevus [Unknown]
